FAERS Safety Report 24830986 (Version 1)
Quarter: 2025Q1

REPORT INFORMATION
  Report Type: Spontaneous
  Country: FR (occurrence: FR)
  Receive Date: 20250110
  Receipt Date: 20250110
  Transmission Date: 20250409
  Serious: Yes (Other)
  Sender: ALEXION PHARMACEUTICALS
  Company Number: FR-SA-2024SA369627

PATIENT
  Age: 8 Month
  Weight: 8.5 kg

DRUGS (4)
  1. NIRSEVIMAB [Suspect]
     Active Substance: NIRSEVIMAB
  2. NIRSEVIMAB [Suspect]
     Active Substance: NIRSEVIMAB
     Route: 030
  3. NIRSEVIMAB [Suspect]
     Active Substance: NIRSEVIMAB
  4. NIRSEVIMAB [Suspect]
     Active Substance: NIRSEVIMAB
     Route: 030

REACTIONS (1)
  - Respiratory syncytial virus bronchiolitis [Unknown]
